FAERS Safety Report 4599408-3 (Version None)
Quarter: 2005Q1

REPORT INFORMATION
  Report Type: 
  Country: None (occurrence: None)
  Receive Date: 20050127
  Receipt Date: 20041012
  Transmission Date: 20050727
  Serious: No
  Sender: FDA-Public Use
  Company Number: USA041080927

PATIENT
  Age: 26 Year
  Sex: Female

DRUGS (2)
  1. STRATTERA [Suspect]
     Dosage: 25 MG OTHER
     Dates: start: 20041012, end: 20041012
  2. PRENATAL VITAMINS [Concomitant]

REACTIONS (1)
  - MEDICATION ERROR [None]
